FAERS Safety Report 22824540 (Version 2)
Quarter: 2024Q2

REPORT INFORMATION
  Report Type: Spontaneous
  Country: JP (occurrence: JP)
  Receive Date: 20230815
  Receipt Date: 20240520
  Transmission Date: 20240716
  Serious: Yes (Life-Threatening, Other)
  Sender: FDA-Public Use
  Company Number: JP-OTSUKA-2023_019186

PATIENT
  Age: 49 Year
  Sex: Male
  Weight: 93.1 kg

DRUGS (16)
  1. REXULTI [Suspect]
     Active Substance: BREXPIPRAZOLE
     Indication: Allergy test
     Dosage: 1 MG (1 TABLET)/TIME, QD
     Route: 048
     Dates: start: 20230309, end: 20230310
  2. MAGNESIUM OXIDE [Concomitant]
     Active Substance: MAGNESIUM OXIDE
     Indication: Constipation
     Dosage: 0.5 G/TIME, BID
     Route: 048
     Dates: start: 20151021
  3. TAMSULOSIN HYDROCHLORIDE [Concomitant]
     Active Substance: TAMSULOSIN HYDROCHLORIDE
     Indication: Hypertonic bladder
     Dosage: 0.2 MG/TIME, QD
     Route: 048
     Dates: start: 20221129
  4. ZOLPIDEM TARTRATE [Concomitant]
     Active Substance: ZOLPIDEM TARTRATE
     Indication: Anxiety
     Dosage: 5MG/TIME, AT THE TIME OF SLEEPLESSNESS
     Route: 048
     Dates: start: 20230319, end: 20230327
  5. RISPERIDONE [Concomitant]
     Active Substance: RISPERIDONE
     Indication: Schizophrenia
     Dosage: 1 MG/TIME, BID
     Route: 048
     Dates: start: 20151021, end: 20230307
  6. RISPERIDONE [Concomitant]
     Active Substance: RISPERIDONE
     Dosage: 2 MG/TIME, QD
     Route: 048
     Dates: start: 20151021, end: 20230310
  7. RISPERIDONE [Concomitant]
     Active Substance: RISPERIDONE
     Dosage: 1 MG/TIME, QD
     Route: 048
     Dates: start: 20230308, end: 20230308
  8. RISPERIDONE [Concomitant]
     Active Substance: RISPERIDONE
     Dosage: 1 MG/TIME, QD
     Route: 048
     Dates: start: 20230311, end: 20230314
  9. PALIPERIDONE [Concomitant]
     Active Substance: PALIPERIDONE
     Indication: Psychiatric symptom
     Dosage: 6 MG/TIME, QD
     Route: 048
     Dates: start: 20230326
  10. BROTIZOLAM [Concomitant]
     Active Substance: BROTIZOLAM
     Indication: Psychiatric symptom
     Dosage: 0.125 MG/TIME, QD
     Route: 048
     Dates: start: 20220310, end: 20230306
  11. BROTIZOLAM [Concomitant]
     Active Substance: BROTIZOLAM
     Indication: Insomnia
     Dosage: 0.25 MG/TIME, AT THE TIME OF SLEEPLESSNESS
     Route: 048
     Dates: start: 20221129, end: 20230306
  12. BROTIZOLAM [Concomitant]
     Active Substance: BROTIZOLAM
     Dosage: 0.25 MG/TIME, QD
     Route: 048
     Dates: start: 20230327
  13. BROTIZOLAM [Concomitant]
     Active Substance: BROTIZOLAM
     Dosage: 0.25 MG/TIME, AT THE TIME OF SLEEPLESSNESS
     Route: 048
     Dates: start: 20230328
  14. RISPERIDONE [Concomitant]
     Active Substance: RISPERIDONE
     Indication: Psychiatric symptom
     Dosage: 1MG/TIME, AT THE TIME OF UNREST
     Route: 048
     Dates: start: 20230328
  15. URSODIOL [Concomitant]
     Active Substance: URSODIOL
     Indication: Liver disorder
     Dosage: 50 MG/TIME, BID
     Route: 048
     Dates: start: 20230328, end: 20230328
  16. URSODIOL [Concomitant]
     Active Substance: URSODIOL
     Dosage: 50 MG/TIME, TID
     Route: 048
     Dates: start: 20230329

REACTIONS (1)
  - Seizure [Recovered/Resolved]

NARRATIVE: CASE EVENT DATE: 20230323
